FAERS Safety Report 7538967-5 (Version None)
Quarter: 2011Q2

REPORT INFORMATION
  Report Type: 
  Country: None (occurrence: None)
  Receive Date: 20110610
  Receipt Date: 20110526
  Transmission Date: 20111010
  Serious: Yes (Hospitalization, Other)
  Sender: FDA-Public Use
  Company Number: US-BAYER-2011-025320

PATIENT
  Age: 30 Year
  Sex: Female
  Weight: 58.957 kg

DRUGS (7)
  1. IBUPROFEN [Concomitant]
     Indication: PAIN
     Dosage: 400 MG, UNK
     Route: 048
     Dates: start: 20091029
  2. ZIAC [Concomitant]
  3. YAZ [Suspect]
     Indication: CONTRACEPTION
     Dosage: UNK
     Route: 048
     Dates: start: 20090401, end: 20091001
  4. YAZ [Suspect]
     Indication: PREMENSTRUAL SYNDROME
  5. RELPAX [Concomitant]
     Dosage: UNK
     Route: 048
     Dates: start: 20050101
  6. TOPAMAX [Concomitant]
     Indication: MIGRAINE
     Dosage: 75 MG, QD
     Route: 048
     Dates: start: 20080401, end: 20100701
  7. PROAIR HFA [Concomitant]
     Dosage: UNK UNK, PRN
     Dates: start: 20080101, end: 20090101

REACTIONS (1)
  - DEEP VEIN THROMBOSIS [None]
